FAERS Safety Report 4515414-9 (Version None)
Quarter: 2004Q4

REPORT INFORMATION
  Report Type: 
  Country: None (occurrence: None)
  Receive Date: 20041126
  Receipt Date: 20041110
  Transmission Date: 20050328
  Serious: Yes (Hospitalization, Other)
  Sender: FDA-Public Use
  Company Number: 2004066266

PATIENT
  Age: 56 Year
  Sex: Female

DRUGS (19)
  1. GEODON [Suspect]
     Indication: ILL-DEFINED DISORDER
     Dosage: 60 MG (1 IN 1 D), ORAL
     Route: 048
     Dates: end: 20040825
  2. QUETIAPINE FUMARATE (QUETIAPINE FUMARATE) [Suspect]
     Indication: ILL-DEFINED DISORDER
     Dosage: ORAL
     Route: 048
  3. ESCITALOPRAM (ESCITALOPRAM) [Concomitant]
  4. OXCARBAZEPINE (OXCARBAZEPINE) [Concomitant]
  5. CLONAZEPAM [Concomitant]
  6. LEVOTHYROXINE SODIUM [Concomitant]
  7. ANTIHYPERTENSIVES (ANTIHYPERTENSIVES) [Concomitant]
  8. DIOVAN HCT [Concomitant]
  9. ESTRADIOL [Concomitant]
  10. DILTIAZEM HYDROCHLORIDE [Concomitant]
  11. OXCARBAZEPINE (OXCARBAZEPINE) [Concomitant]
  12. TEMAZEPAM [Concomitant]
  13. NICOTINIC ACID [Concomitant]
  14. CLINDAMYCIN (CLINDAMYCIN) [Concomitant]
  15. CLONIDINE [Concomitant]
  16. ISRADIPINE [Concomitant]
  17. POTASSIUM CHLORIDE [Concomitant]
  18. QUINAPRIL HCL [Concomitant]
  19. ARIPIPRAZOLE (ARIPIPRAZOLE) [Concomitant]

REACTIONS (23)
  - ALANINE AMINOTRANSFERASE INCREASED [None]
  - ASPARTATE AMINOTRANSFERASE INCREASED [None]
  - BLOOD ELECTROLYTES ABNORMAL [None]
  - BLOOD PRESSURE INCREASED [None]
  - BRADYCARDIA [None]
  - CARDIAC ARREST [None]
  - COMA [None]
  - CYANOSIS [None]
  - DIARRHOEA [None]
  - ELECTROCARDIOGRAM QT CORRECTED INTERVAL [None]
  - ELECTROCARDIOGRAM QT PROLONGED [None]
  - FALL [None]
  - HEART RATE DECREASED [None]
  - HEART RATE INCREASED [None]
  - HYPERTRIGLYCERIDAEMIA [None]
  - HYPOKALAEMIA [None]
  - LABORATORY TEST ABNORMAL [None]
  - LEUKOCYTOSIS [None]
  - LONG QT SYNDROME [None]
  - PNEUMONIA ASPIRATION [None]
  - RESPIRATORY ARREST [None]
  - TORSADE DE POINTES [None]
  - VENTRICULAR FIBRILLATION [None]
